FAERS Safety Report 6977606-9 (Version None)
Quarter: 2010Q3

REPORT INFORMATION
  Report Type: 
  Country: None (occurrence: None)
  Receive Date: 20100913
  Receipt Date: 20100902
  Transmission Date: 20110219
  Serious: Yes (Hospitalization)
  Sender: FDA-Public Use
  Company Number: US-BIOGENIDEC-2009BI017667

PATIENT
  Age: 67 Year
  Sex: Male

DRUGS (3)
  1. AVONEX [Suspect]
     Indication: MULTIPLE SCLEROSIS
     Route: 030
     Dates: start: 20010322, end: 20050110
  2. AVONEX [Suspect]
     Route: 030
     Dates: start: 20060428
  3. BACLOFEN [Concomitant]

REACTIONS (8)
  - ABASIA [None]
  - DECUBITUS ULCER [None]
  - DEPRESSED MOOD [None]
  - FAECAL INCONTINENCE [None]
  - INFECTED SKIN ULCER [None]
  - INFLUENZA LIKE ILLNESS [None]
  - POSTOPERATIVE FEVER [None]
  - WEIGHT DECREASED [None]
